FAERS Safety Report 5454102-1 (Version None)
Quarter: 2007Q3

REPORT INFORMATION
  Report Type: 
  Country: None (occurrence: None)
  Receive Date: 20070917
  Receipt Date: 20070709
  Transmission Date: 20080115
  Serious: Yes (Other)
  Sender: FDA-Public Use
  Company Number: US-ASTRAZENECA-2006UW09012

PATIENT
  Age: 373 Month
  Sex: Male

DRUGS (3)
  1. SEROQUEL [Suspect]
     Indication: SCHIZOPHRENIA
     Dosage: 25 MG TO 100 MG
     Route: 048
     Dates: start: 20020101
  2. RISPERDAL [Suspect]
     Indication: SCHIZOPHRENIA
     Dates: start: 19991201, end: 20000201
  3. ZYPREXA [Suspect]
     Indication: SCHIZOPHRENIA
     Dates: start: 20000901, end: 20020101

REACTIONS (1)
  - PANCREATITIS [None]
